FAERS Safety Report 21523352 (Version 1)
Quarter: 2022Q4

REPORT INFORMATION
  Report Type: Report from Study
  Country: US (occurrence: US)
  Receive Date: 20221029
  Receipt Date: 20221029
  Transmission Date: 20230112
  Serious: No
  Sender: FDA-Public Use
  Company Number: US-ABBVIE-22K-163-4522888-00

PATIENT
  Sex: Female

DRUGS (2)
  1. CREON [Suspect]
     Active Substance: PANCRELIPASE AMYLASE\PANCRELIPASE LIPASE\PANCRELIPASE PROTEASE
     Indication: Pancreatectomy
     Route: 048
     Dates: start: 2017
  2. BOTOX [Concomitant]
     Active Substance: ONABOTULINUMTOXINA
     Indication: Headache

REACTIONS (1)
  - Headache [Not Recovered/Not Resolved]
